APPROVED DRUG PRODUCT: ACYCLOVIR
Active Ingredient: ACYCLOVIR
Strength: 5%
Dosage Form/Route: OINTMENT;TOPICAL
Application: A204605 | Product #001 | TE Code: AB
Applicant: AMNEAL PHARMACEUTICALS
Approved: Jun 18, 2014 | RLD: No | RS: No | Type: RX